FAERS Safety Report 7590823-2 (Version None)
Quarter: 2011Q3

REPORT INFORMATION
  Report Type: 
  Country: None (occurrence: None)
  Receive Date: 20110705
  Receipt Date: 20110628
  Transmission Date: 20111222
  Serious: Yes (Other)
  Sender: FDA-Public Use
  Company Number: BR-PFIZER INC-2011144852

PATIENT
  Age: 54 Year
  Sex: Female

DRUGS (1)
  1. LYRICA [Suspect]
     Indication: BACK DISORDER
     Dosage: 3 CAPSULES OF 75MG DAILY
     Route: 048
     Dates: start: 20110418, end: 20110101

REACTIONS (1)
  - HEPATIC ENZYME INCREASED [None]
